FAERS Safety Report 8773807 (Version 2)
Quarter: 2012Q4

REPORT INFORMATION
  Report Type: 
  Country: US (occurrence: US)
  Receive Date: 20120907
  Receipt Date: 20121115
  Transmission Date: 20130627
  Serious: Yes (Other)
  Sender: FDA-Public Use
  Company Number: US-ASTRAZENECA-2012SE61415

PATIENT
  Age: 54 Year
  Sex: Female

DRUGS (4)
  1. SYMBICORT PMDI [Suspect]
     Dosage: UNKNOWN
     Route: 055
  2. CRESTOR [Suspect]
     Route: 048
  3. CYMBALTA [Concomitant]
  4. LYRICA [Concomitant]

REACTIONS (17)
  - Thrombosis [Unknown]
  - Kyphoscoliosis [Unknown]
  - Cardiac disorder [Unknown]
  - Gastric disorder [Unknown]
  - Arthropod bite [Unknown]
  - Back disorder [Unknown]
  - Pneumonia [Unknown]
  - Blood cholesterol abnormal [Unknown]
  - Diabetes mellitus [Unknown]
  - Infection [Unknown]
  - Malaise [Unknown]
  - Fall [Unknown]
  - Dyspnoea [Unknown]
  - Balance disorder [Unknown]
  - Temperature regulation disorder [Unknown]
  - Lung disorder [Unknown]
  - Angina pectoris [Unknown]
